FAERS Safety Report 17565854 (Version 1)
Quarter: 2020Q1

REPORT INFORMATION
  Report Type: Spontaneous
  Country: ES (occurrence: ES)
  Receive Date: 20200320
  Receipt Date: 20200320
  Transmission Date: 20200409
  Serious: Yes (Life-Threatening, Hospitalization, Other)
  Sender: FDA-Public Use
  Company Number: ES-AMGEN-ESPSP2019105083

PATIENT
  Age: 62 Year
  Sex: Female

DRUGS (1)
  1. ADALIMUMAB [Suspect]
     Active Substance: ADALIMUMAB
     Indication: RHEUMATOID ARTHRITIS
     Dosage: 40 MILLIGRAM, Q4WK
     Route: 058
     Dates: start: 20080618, end: 20190405

REACTIONS (1)
  - B-cell lymphoma [Recovering/Resolving]

NARRATIVE: CASE EVENT DATE: 20190314
